FAERS Safety Report 4542346-2 (Version None)
Quarter: 2004Q4

REPORT INFORMATION
  Report Type: 
  Country: None (occurrence: None)
  Receive Date: 20041227
  Receipt Date: 20041216
  Transmission Date: 20050328
  Serious: Yes (Life-Threatening)
  Sender: FDA-Public Use
  Company Number: USA-2004-0018055

PATIENT
  Sex: Female

DRUGS (1)
  1. OXYCODONE HCL [Suspect]

REACTIONS (3)
  - COMA [None]
  - DRUG ABUSER [None]
  - INTENTIONAL MISUSE [None]
